FAERS Safety Report 24797786 (Version 3)
Quarter: 2025Q2

REPORT INFORMATION
  Report Type: Report from Study
  Country: US (occurrence: US)
  Receive Date: 20250102
  Receipt Date: 20250429
  Transmission Date: 20250716
  Serious: No
  Sender: BRISTOL-MYERS SQUIBB COMPANY
  Company Number: US-BRISTOL-MYERS SQUIBB COMPANY-2025-000008

PATIENT
  Age: 80 Year
  Sex: Female
  Weight: 72.57 kg

DRUGS (8)
  1. ELIQUIS [Suspect]
     Active Substance: APIXABAN
     Indication: Atrial fibrillation
     Route: 048
     Dates: start: 20241204
  2. ELIQUIS [Suspect]
     Active Substance: APIXABAN
     Route: 048
  3. XARELTO [Suspect]
     Active Substance: RIVAROXABAN
     Indication: Product used for unknown indication
  4. METOPROLOL [Concomitant]
     Active Substance: METOPROLOL
     Indication: Hypertension
     Route: 048
     Dates: start: 2007
  5. LAMOTRIGINE [Concomitant]
     Active Substance: LAMOTRIGINE
     Indication: Depressed mood
     Dosage: FOR 30 YEARS OR MORE
     Route: 048
     Dates: start: 1997
  6. RABEPRAZOLE [Concomitant]
     Active Substance: RABEPRAZOLE
     Indication: Ulcer
     Route: 048
     Dates: start: 2020
  7. FISH OIL [Concomitant]
     Active Substance: FISH OIL
     Indication: Dry eye
     Dosage: DE3 - 2400 MG 1000 IU - DAILY
     Dates: start: 2018
  8. PLAVIX [Concomitant]
     Active Substance: CLOPIDOGREL BISULFATE
     Indication: Myocardial infarction
     Dates: start: 202403

REACTIONS (6)
  - Dizziness [Not Recovered/Not Resolved]
  - Hangover [Not Recovered/Not Resolved]
  - Confusional state [Recovered/Resolved]
  - Abdominal pain upper [Unknown]
  - Treatment noncompliance [Unknown]
  - Pain [Not Recovered/Not Resolved]

NARRATIVE: CASE EVENT DATE: 20241201
